FAERS Safety Report 4911805-2 (Version None)
Quarter: 2006Q1

REPORT INFORMATION
  Report Type: 
  Country: None (occurrence: None)
  Receive Date: 20060213
  Receipt Date: 20060213
  Transmission Date: 20060701
  Serious: Yes (Disabling)
  Sender: FDA-Public Use
  Company Number: None

PATIENT
  Age: 53 Year
  Sex: Male

DRUGS (1)
  1. FLUROX [Suspect]
     Indication: INTRAOCULAR PRESSURE TEST
     Dosage: 1 OR 2 DROP ONCE TOP
     Route: 061
     Dates: start: 20060208, end: 20060208

REACTIONS (6)
  - CORNEAL EPITHELIUM DISORDER [None]
  - EYE IRRITATION [None]
  - EYE PAIN [None]
  - FOREIGN BODY SENSATION IN EYES [None]
  - OCULAR HYPERAEMIA [None]
  - PHARMACEUTICAL PRODUCT COMPLAINT [None]
